FAERS Safety Report 5762533-5 (Version None)
Quarter: 2008Q2

REPORT INFORMATION
  Report Type: 
  Country: None (occurrence: None)
  Receive Date: 20080609
  Receipt Date: 20080529
  Transmission Date: 20081010
  Serious: Yes (Other)
  Sender: FDA-Public Use
  Company Number: B0360667A

PATIENT
  Sex: Female

DRUGS (7)
  1. PAROXETINE HCL [Suspect]
     Indication: DEPRESSION
     Route: 065
     Dates: start: 19950515, end: 20030201
  2. PAROXETINE HCL [Suspect]
  3. HRT [Concomitant]
  4. LOFEPRAMINE [Concomitant]
     Dates: start: 20020705
  5. PROZAC [Concomitant]
     Dates: start: 20021202
  6. INDERAL [Concomitant]
     Dates: start: 19970301
  7. OXYBUTYNIN CHLORIDE [Concomitant]
     Dates: start: 19970601, end: 19971001

REACTIONS (23)
  - ABNORMAL DREAMS [None]
  - ACNE [None]
  - AGGRESSION [None]
  - AMNESIA [None]
  - DEPRESSIVE SYMPTOM [None]
  - DISORIENTATION [None]
  - DISTURBANCE IN ATTENTION [None]
  - DIZZINESS [None]
  - DRUG WITHDRAWAL SYNDROME [None]
  - DRY MOUTH [None]
  - EMOTIONAL DISORDER [None]
  - EPISTAXIS [None]
  - FEELING ABNORMAL [None]
  - HALLUCINATION [None]
  - HIRSUTISM [None]
  - HOT FLUSH [None]
  - HYPERHIDROSIS [None]
  - MOOD SWINGS [None]
  - PALPITATIONS [None]
  - PSORIASIS [None]
  - SOMNOLENCE [None]
  - TEARFULNESS [None]
  - WITHDRAWAL SYNDROME [None]
